FAERS Safety Report 15295181 (Version 2)
Quarter: 2018Q3

REPORT INFORMATION
  Report Type: Spontaneous
  Country: US (occurrence: US)
  Receive Date: 20180820
  Receipt Date: 20180823
  Transmission Date: 20181010
  Serious: No
  Sender: FDA-Public Use
  Company Number: US-PFIZER INC-2018333263

PATIENT
  Age: 8 Year
  Sex: Male

DRUGS (2)
  1. GENOTROPIN [Suspect]
     Active Substance: SOMATROPIN
     Dosage: 1.3 MG, DAILY (7 DAY PER WEEK)
  2. GENOTROPIN [Suspect]
     Active Substance: SOMATROPIN
     Dosage: UNK, DAILY (ALTERNATE DOSE OF 1.2MG AND 1.4MG DAILY)
     Dates: start: 20150205, end: 20180412

REACTIONS (3)
  - Drug prescribing error [Unknown]
  - Blood immunoglobulin G decreased [Unknown]
  - Anti-transglutaminase antibody increased [Unknown]

NARRATIVE: CASE EVENT DATE: 20180413
